FAERS Safety Report 7638225-4 (Version None)
Quarter: 2011Q3

REPORT INFORMATION
  Report Type: 
  Country: None (occurrence: None)
  Receive Date: 20110727
  Receipt Date: 20110718
  Transmission Date: 20111222
  Serious: Yes (Hospitalization)
  Sender: FDA-Public Use
  Company Number: KR-NAPPMUNDI-MAG-2011-0001523

PATIENT
  Sex: Male

DRUGS (28)
  1. OXYCODONE HCL [Suspect]
     Dosage: 10 MG, BID
     Route: 048
     Dates: start: 20110519, end: 20110525
  2. DOCUSATE [Concomitant]
     Dosage: UNK
     Route: 054
     Dates: start: 20110601, end: 20110601
  3. DEXTROSE [Concomitant]
     Dosage: 50 ML, UNK
     Route: 042
     Dates: start: 20110609, end: 20110609
  4. PENTOSAN POLYSULFATE SODIUM [Concomitant]
     Indication: BENIGN PROSTATIC HYPERPLASIA
     Dosage: 1 TABLET, UNK
     Route: 048
     Dates: start: 20101116, end: 20110523
  5. POTASSIUM CHLORIDE [Concomitant]
     Dosage: 20 ML, UNK
     Route: 042
     Dates: start: 20110607
  6. MEPERIDINE HCL [Concomitant]
     Dosage: 50 MG, UNK
     Dates: start: 20110523, end: 20110523
  7. KETOROLAC TROMETHAMINE [Concomitant]
     Dosage: 15 TO 30 MG, PRN
     Dates: start: 20110609
  8. CHLORPHENIRAMINE MALEATE [Concomitant]
     Dosage: 2 MG, UNK
     Route: 042
     Dates: start: 20110609, end: 20110609
  9. SODIUM CHLORIDE [Concomitant]
     Indication: PROPHYLAXIS
     Dosage: 2 AMPULE, UNK
     Route: 042
     Dates: start: 20110531
  10. DOCUSATE [Concomitant]
     Dosage: UNK
     Route: 054
     Dates: start: 20110607, end: 20110607
  11. METOCLOPRAMIDE [Concomitant]
     Dosage: 20 MG, UNK
     Route: 042
     Dates: start: 20110609, end: 20110609
  12. METOPROLOL TARTRATE [Concomitant]
     Indication: HYPERTENSION
     Dosage: 1 TABLET, UNK
     Route: 048
     Dates: start: 19890501
  13. POTASSIUM CHLORIDE [Concomitant]
     Indication: PROPHYLAXIS
     Dosage: 1 AMPULE, UNK
     Route: 042
     Dates: start: 20110531
  14. LABETALOL HCL [Concomitant]
     Dosage: 10 MG, UNK
     Route: 042
     Dates: start: 20110601, end: 20110601
  15. TRAMADOL HCL [Concomitant]
     Dosage: 50 TO 150 MG
     Route: 042
     Dates: start: 20110608
  16. MG [Concomitant]
     Dosage: 50 TO 1500 MG, UNK
     Route: 048
     Dates: start: 20110528
  17. DOCUSATE/SORBITOL [Concomitant]
  18. SODIUM CHLORIDE [Concomitant]
     Indication: FLUID REPLACEMENT
     Dosage: 1 BAG
     Route: 042
     Dates: start: 20110605, end: 20110612
  19. DEXTROSE [Concomitant]
     Dosage: UNK
     Route: 042
     Dates: start: 20110531, end: 20110605
  20. MORPHINE [Concomitant]
     Dosage: 3 MG, UNK
     Route: 042
     Dates: start: 20110604, end: 20110604
  21. LOPERAMIDE OXIDE [Concomitant]
     Indication: DIARRHOEA
     Dosage: 1 TABLET, PRN
     Route: 048
     Dates: start: 20080621, end: 20110523
  22. SODIUM CHLORIDE [Concomitant]
     Dosage: 40 ML, UNK
     Route: 042
     Dates: start: 20110609
  23. OXYCODONE HCL [Suspect]
     Indication: ANALGESIC THERAPY
     Dosage: 20 MG, BID
     Route: 048
     Dates: start: 20110526, end: 20110608
  24. SIMVASTATIN [Concomitant]
     Indication: HYPERLIPIDAEMIA
     Dosage: 1 TABLET, UNK
     Route: 048
     Dates: start: 20091012, end: 20110604
  25. FAMOTIDINE [Concomitant]
     Indication: PROPHYLAXIS
     Dosage: 20 MG, BID
     Route: 042
     Dates: start: 20110531
  26. MULTI-VITAMINS [Concomitant]
     Indication: MEDICAL DIET
     Dosage: 1 AMPULE, UNK
     Route: 042
     Dates: start: 20110605
  27. COLONLYTELY                        /01271501/ [Concomitant]
     Dosage: UNK
     Route: 048
     Dates: start: 20110523, end: 20110523
  28. IRCODIN [Concomitant]
     Dosage: 5 TO 15 MG, PRN
     Route: 048

REACTIONS (4)
  - ABDOMINAL DISTENSION [None]
  - MECHANICAL ILEUS [None]
  - VOMITING [None]
  - METASTASES TO LUNG [None]
